FAERS Safety Report 7178890-1 (Version None)
Quarter: 2010Q4

REPORT INFORMATION
  Report Type: 
  Country: None (occurrence: None)
  Receive Date: 20101217
  Receipt Date: 20101217
  Transmission Date: 20110411
  Serious: Yes (Hospitalization)
  Sender: FDA-Public Use
  Company Number: None

PATIENT
  Age: 53 Year
  Sex: Female
  Weight: 92.9 kg

DRUGS (16)
  1. PAZOPANIB 800 MG GLAXOSMITHKLINE [Suspect]
     Indication: SMALL CELL LUNG CANCER STAGE UNSPECIFIED
     Dosage: 800 MG ONCE A DAY PO
     Route: 048
     Dates: start: 20101110, end: 20101207
  2. ALBUTEROL INHALER [Concomitant]
  3. ATIVIAN [Concomitant]
  4. COLACE [Concomitant]
  5. COMPAZINE [Concomitant]
  6. FAMOTIDINE [Concomitant]
  7. GUAIFENESIN [Concomitant]
  8. IMITREX [Concomitant]
  9. LIDOCAINE HYDROCHLORIDE IN PLASTIC CONTAINER [Concomitant]
  10. SENNA [Concomitant]
  11. SEROQUEL [Concomitant]
  12. SIMVASTATIN [Concomitant]
  13. WELLBUTRIN SR [Concomitant]
  14. ZOFRAN [Concomitant]
  15. ZOLOFT [Concomitant]
  16. ZOLPIDEM TARTARET [Concomitant]

REACTIONS (8)
  - ATAXIA [None]
  - CONFUSIONAL STATE [None]
  - ELECTROCARDIOGRAM QT PROLONGED [None]
  - ELECTROCARDIOGRAM ST SEGMENT ABNORMAL [None]
  - ELECTROCARDIOGRAM T WAVE ABNORMAL [None]
  - HYPOKALAEMIA [None]
  - TRANSIENT ISCHAEMIC ATTACK [None]
  - URINARY TRACT INFECTION [None]
